FAERS Safety Report 23049566 (Version 1)
Quarter: 2023Q4

REPORT INFORMATION
  Report Type: Spontaneous
  Country: None (occurrence: FR)
  Receive Date: 20231010
  Receipt Date: 20231010
  Transmission Date: 20240110
  Serious: Yes (Death)
  Sender: FDA-Public Use
  Company Number: FR-B.Braun Medical Inc.-2146846

PATIENT
  Age: 54 Year
  Sex: Male
  Weight: 90 kg

DRUGS (11)
  1. ACETAMINOPHEN [Suspect]
     Active Substance: ACETAMINOPHEN
     Indication: Pain
  2. GABAPENTIN [Suspect]
     Active Substance: GABAPENTIN
  3. MORPHINE [Suspect]
     Active Substance: MORPHINE
  4. VALACYCLOVIR HYDROCHLORIDE [Suspect]
     Active Substance: VALACYCLOVIR HYDROCHLORIDE
  5. PREDNISONE [Suspect]
     Active Substance: PREDNISONE
  6. AMITRIPTYLINE HYDROCHLORIDE [Suspect]
     Active Substance: AMITRIPTYLINE HYDROCHLORIDE
  7. CISPLATIN [Suspect]
     Active Substance: CISPLATIN
  8. CETUXIMAB [Suspect]
     Active Substance: CETUXIMAB
  9. AMIODARONE [Suspect]
     Active Substance: AMIODARONE
  10. RUXOLITINIB [Suspect]
     Active Substance: RUXOLITINIB
  11. DOXYCYCLINE [Suspect]
     Active Substance: DOXYCYCLINE

REACTIONS (3)
  - Aortic thrombosis [None]
  - Mesenteric artery thrombosis [None]
  - Renal infarct [None]
